FAERS Safety Report 19875203 (Version 2)
Quarter: 2021Q3

REPORT INFORMATION
  Report Type: Spontaneous
  Country: CA (occurrence: CA)
  Receive Date: 20210923
  Receipt Date: 20210927
  Transmission Date: 20211014
  Serious: Yes (Death, Hospitalization)
  Sender: FDA-Public Use
  Company Number: CA-TEVA-2021-CA-1955851

PATIENT
  Age: 76 Year
  Sex: Male
  Weight: 97 kg

DRUGS (4)
  1. DOXORUBICIN INJECTION,BP [Suspect]
     Active Substance: DOXORUBICIN HYDROCHLORIDE
     Route: 042
  2. VINCRISTINE SULPHATE INJECTION [Suspect]
     Active Substance: VINCRISTINE SULFATE
     Route: 042
  3. PROCYTOX [Suspect]
     Active Substance: CYCLOPHOSPHAMIDE
     Route: 042
  4. TRUXIMA [Suspect]
     Active Substance: RITUXIMAB-ABBS
     Route: 042

REACTIONS (1)
  - Meningitis cryptococcal [Fatal]
